FAERS Safety Report 6717649-3 (Version None)
Quarter: 2010Q2

REPORT INFORMATION
  Report Type: 
  Country: None (occurrence: None)
  Receive Date: 20100510
  Receipt Date: 20100421
  Transmission Date: 20101027
  Serious: No
  Sender: FDA-Public Use
  Company Number: A0854141A

PATIENT
  Age: 45 Year
  Sex: Male

DRUGS (2)
  1. ALTABAX [Suspect]
     Indication: STAPHYLOCOCCAL INFECTION
     Dosage: 5G PER DAY
     Route: 061
     Dates: start: 20100406
  2. DOXYCYCLINE HYCLATE [Concomitant]
     Indication: STAPHYLOCOCCAL INFECTION

REACTIONS (1)
  - DIZZINESS [None]
